FAERS Safety Report 9400447 (Version 1)
Quarter: 2013Q3

REPORT INFORMATION
  Report Type: Spontaneous
  Country: US (occurrence: None)
  Receive Date: 20130712
  Receipt Date: 20130712
  Transmission Date: 20140515
  Serious: No
  Sender: FDA-Public Use
  Company Number: None

PATIENT
  Age: 63 Year
  Sex: Female
  Weight: 81.65 kg

DRUGS (10)
  1. LEXAPRO 10MG (GENERIC) [Suspect]
     Indication: DEPRESSION
     Dosage: STRENGTH: 10MG    QUANTITY: 90 (3 MO)  FREQUENCY: DAILY   ORALLY
     Route: 048
  2. SYNTHROID [Concomitant]
  3. KLONOPIN [Concomitant]
  4. RESTASIS [Concomitant]
  5. GABAPENTIN [Concomitant]
  6. COSAMINE DS [Concomitant]
  7. TYLENOL [Concomitant]
  8. MULTIVITAMIN [Concomitant]
  9. L LYSINE [Concomitant]
  10. VITAMIN D [Concomitant]

REACTIONS (3)
  - Depression [None]
  - Crying [None]
  - Product substitution issue [None]
